FAERS Safety Report 5402485-0 (Version None)
Quarter: 2007Q3

REPORT INFORMATION
  Report Type: 
  Country: None (occurrence: None)
  Receive Date: 20070801
  Receipt Date: 20060727
  Transmission Date: 20080115
  Serious: No
  Sender: FDA-Public Use
  Company Number: A0612550A

PATIENT
  Age: 48 Year
  Sex: Male
  Weight: 75.5 kg

DRUGS (3)
  1. IMITREX [Suspect]
     Indication: MIGRAINE
     Dosage: 100MG AS REQUIRED
     Route: 048
  2. LEXAPRO [Concomitant]
     Indication: DEPRESSION
     Dosage: 5MG PER DAY
     Route: 048
     Dates: start: 20051201
  3. TOPAMAX [Concomitant]
     Indication: MIGRAINE
     Dosage: 25MG TWICE PER DAY
     Route: 048

REACTIONS (1)
  - ISCHAEMIA [None]
